FAERS Safety Report 8539628-6 (Version None)
Quarter: 2012Q3

REPORT INFORMATION
  Report Type: 
  Country: None (occurrence: None)
  Receive Date: 20120726
  Receipt Date: 20120717
  Transmission Date: 20120928
  Serious: Yes (Other)
  Sender: FDA-Public Use
  Company Number: US-JNJFOC-20120711121

PATIENT
  Age: 61 Year
  Sex: Male
  Weight: 97.52 kg

DRUGS (2)
  1. FOLIC ACID [Concomitant]
     Indication: CARDIAC DISORDER
     Dosage: SEVERAL YEARS
     Route: 065
  2. LISTERINE ADVANCED MOUTHWASH TARTAR PROTECTION [Suspect]
     Indication: DENTAL DISORDER PROPHYLAXIS
     Dosage: UNKNOWN AMOUNT INTO GLASS, JUST IN THE EVENING BEFORE BEDTIME DAILY
     Route: 048
     Dates: start: 20120101

REACTIONS (5)
  - WRONG TECHNIQUE IN DRUG USAGE PROCESS [None]
  - ORAL DISORDER [None]
  - OROPHARYNGEAL PAIN [None]
  - MUCOSAL HAEMORRHAGE [None]
  - EXPIRED DRUG ADMINISTERED [None]
